FAERS Safety Report 22217517 (Version 1)
Quarter: 2023Q2

REPORT INFORMATION
  Report Type: Spontaneous
  Country: US (occurrence: US)
  Receive Date: 20230417
  Receipt Date: 20230417
  Transmission Date: 20230721
  Serious: Yes (Other)
  Sender: FDA-Public Use
  Company Number: US-STERISCIENCE B.V.-2023-ST-001127

PATIENT
  Age: 67 Year
  Sex: Male

DRUGS (10)
  1. MYCOPHENOLATE MOFETIL [Suspect]
     Active Substance: MYCOPHENOLATE MOFETIL
     Indication: Acute graft versus host disease
     Dosage: 500 MILLIGRAM, BID, TAPERED OFF OVER 4 WEEKS
     Route: 065
  2. PREDNISONE [Suspect]
     Active Substance: PREDNISONE
     Indication: Acute graft versus host disease
     Dosage: 80 MILLIGRAM, QD
     Route: 065
  3. PREDNISONE [Suspect]
     Active Substance: PREDNISONE
     Dosage: 40 MILLIGRAM, QD, TAPERED OFF OVER 4 WEEKS
     Route: 065
  4. DOXYCYCLINE [Concomitant]
     Active Substance: DOXYCYCLINE
     Indication: Transient acantholytic dermatosis
     Dosage: UNK
     Route: 048
  5. ACITRETIN [Concomitant]
     Active Substance: ACITRETIN
     Indication: Transient acantholytic dermatosis
     Dosage: 10 MILLIGRAM, QD
     Route: 065
  6. ACITRETIN [Concomitant]
     Active Substance: ACITRETIN
     Indication: Chronic graft versus host disease in skin
     Dosage: 25 MILLIGRAM, QD
     Route: 065
  7. TACROLIMUS [Concomitant]
     Active Substance: TACROLIMUS
     Indication: Immunosuppressant drug therapy
     Dosage: 1 MILLIGRAM, BID
     Route: 065
  8. TACROLIMUS [Concomitant]
     Active Substance: TACROLIMUS
     Dosage: 0.5 MILLIGRAM, BID
     Route: 065
  9. RUXOLITINIB [Concomitant]
     Active Substance: RUXOLITINIB
     Indication: Acute graft versus host disease
     Dosage: 10 MILLIGRAM, BID (TAPERED OFF OVER 4 WEEKS)
     Route: 065
  10. CALCIPOTRIENE [Concomitant]
     Active Substance: CALCIPOTRIENE
     Indication: Transient acantholytic dermatosis
     Dosage: UNK
     Route: 061

REACTIONS (1)
  - Rebound effect [None]
